FAERS Safety Report 4996481-5 (Version None)
Quarter: 2006Q2

REPORT INFORMATION
  Report Type: 
  Country: None (occurrence: None)
  Receive Date: 20060509
  Receipt Date: 20060427
  Transmission Date: 20061013
  Serious: Yes (Hospitalization)
  Sender: FDA-Public Use
  Company Number: DK-JNJFOC-20060204426

PATIENT
  Sex: Male
  Weight: 75 kg

DRUGS (5)
  1. REMICADE [Suspect]
     Route: 042
  2. REMICADE [Suspect]
     Route: 042
  3. REMICADE [Suspect]
     Indication: CROHN'S DISEASE
     Dosage: 5 MG/KG
     Route: 042
  4. IMUREL [Concomitant]
     Indication: CROHN'S DISEASE
     Route: 048
  5. PREDNISOLONE [Concomitant]

REACTIONS (2)
  - IMPAIRED WORK ABILITY [None]
  - PULMONARY TUBERCULOSIS [None]
